FAERS Safety Report 15402911 (Version 1)
Quarter: 2018Q3

REPORT INFORMATION
  Report Type: Spontaneous
  Country: IL (occurrence: IL)
  Receive Date: 20180919
  Receipt Date: 20180919
  Transmission Date: 20181010
  Serious: Yes (Other)
  Sender: FDA-Public Use
  Company Number: IL-ELI_LILLY_AND_COMPANY-IL201809005762

PATIENT
  Age: 76 Year
  Sex: Male

DRUGS (1)
  1. RAMUCIRUMAB [Suspect]
     Active Substance: RAMUCIRUMAB
     Indication: PRODUCT USED FOR UNKNOWN INDICATION
     Dosage: 870 MG, UNKNOWN
     Route: 065
     Dates: start: 20180614

REACTIONS (3)
  - Hypoalbuminaemia [Unknown]
  - Hypothyroidism [Unknown]
  - Proteinuria [Unknown]
